FAERS Safety Report 4524891-9 (Version None)
Quarter: 2004Q4

REPORT INFORMATION
  Report Type: 
  Country: None (occurrence: None)
  Receive Date: 20041117
  Receipt Date: 20040326
  Transmission Date: 20050328
  Serious: Yes (Other)
  Sender: FDA-Public Use
  Company Number: 2004S1000931

PATIENT
  Age: 71 Year
  Sex: Male

DRUGS (6)
  1. CLOZAPINE [Suspect]
     Indication: AGITATION
     Dosage: 50MG Q, HS, ORAL; YEARS
     Route: 048
  2. QUETIAPINE [Concomitant]
     Indication: AGGRESSION
  3. ROFECOXIB [Concomitant]
  4. ZINC SULFATE [Concomitant]
  5. VITAMIN C [Concomitant]
  6. VITAMIN E [Concomitant]

REACTIONS (1)
  - NEUTROPENIA [None]
